FAERS Safety Report 8809632 (Version 1)
Quarter: 2012Q4

REPORT INFORMATION
  Report Type: 
  Country: US (occurrence: US)
  Receive Date: 20120926
  Receipt Date: 20120926
  Transmission Date: 20130627
  Serious: Yes (Other)
  Sender: FDA-Public Use
  Company Number: US-ROCHE-1098648

PATIENT
  Sex: Male

DRUGS (4)
  1. AVASTIN [Suspect]
     Indication: MALIGNANT NEOPLASM OF RENAL PELVIS
     Route: 065
  2. AVASTIN [Suspect]
     Indication: HAEMATOLOGICAL MALIGNANCY
  3. ZOMETA [Concomitant]
     Route: 065
     Dates: start: 200711
  4. SUTENT [Concomitant]

REACTIONS (3)
  - Disease progression [Unknown]
  - Hypercalcaemia [Unknown]
  - Pain [Unknown]
